FAERS Safety Report 7085799-0 (Version None)
Quarter: 2010Q4

REPORT INFORMATION
  Report Type: 
  Country: None (occurrence: None)
  Receive Date: 20101105
  Receipt Date: 20101026
  Transmission Date: 20110411
  Serious: Yes (Hospitalization)
  Sender: FDA-Public Use
  Company Number: US-ROCHE-736888

PATIENT
  Sex: Male

DRUGS (6)
  1. CAPECITABINE [Suspect]
     Indication: METASTATIC GASTRIC CANCER
     Dosage: FOR 14 DAYS
     Route: 048
     Dates: start: 20100902
  2. OXALIPLATIN [Suspect]
     Indication: METASTATIC GASTRIC CANCER
     Route: 041
     Dates: start: 20100902
  3. CETUXIMAB [Suspect]
     Indication: METASTATIC GASTRIC CANCER
     Dosage: ROUTE: IV NOT OTHERWISE SPECIFIED
     Route: 042
     Dates: start: 20100902
  4. VYTORIN [Concomitant]
  5. OMEPRAZOLE [Concomitant]
  6. LOVENOX [Concomitant]

REACTIONS (8)
  - CONSTIPATION [None]
  - DECREASED APPETITE [None]
  - GAIT DISTURBANCE [None]
  - HAEMORRHAGE [None]
  - HYPOAESTHESIA [None]
  - MALIGNANT NEOPLASM PROGRESSION [None]
  - NAUSEA [None]
  - VISION BLURRED [None]
